FAERS Safety Report 12106235 (Version 2)
Quarter: 2016Q1

REPORT INFORMATION
  Report Type: Report from Study
  Country: TR (occurrence: TR)
  Receive Date: 20160223
  Receipt Date: 20160225
  Transmission Date: 20160526
  Serious: Yes (Hospitalization, Other)
  Sender: FDA-Public Use
  Company Number: TR-ABBVIE-14K-161-1309616-00

PATIENT
  Age: 56 Year
  Sex: Female
  Weight: 60 kg

DRUGS (1)
  1. HUMIRA [Suspect]
     Active Substance: ADALIMUMAB
     Indication: RHEUMATOID ARTHRITIS
     Route: 058
     Dates: start: 20140407, end: 20141008

REACTIONS (7)
  - Knee arthroplasty [Recovered/Resolved]
  - Skin hypertrophy [Recovered/Resolved]
  - Cardiac failure [Recovering/Resolving]
  - Arteriosclerosis [Recovering/Resolving]
  - Skin discolouration [Recovered/Resolved]
  - Arrhythmia [Recovering/Resolving]
  - Feeling of body temperature change [Recovered/Resolved]

NARRATIVE: CASE EVENT DATE: 20141008
